FAERS Safety Report 6703514-4 (Version None)
Quarter: 2010Q2

REPORT INFORMATION
  Report Type: 
  Country: None (occurrence: None)
  Receive Date: 20100430
  Receipt Date: 20100419
  Transmission Date: 20101027
  Serious: Yes (Hospitalization, Other)
  Sender: FDA-Public Use
  Company Number: PHHY2010US25111

PATIENT
  Sex: Female

DRUGS (1)
  1. CLOZAPINE [Suspect]
     Dosage: 700 MG DAILY

REACTIONS (3)
  - LEUKAEMIA [None]
  - MENTAL DISORDER [None]
  - WHITE BLOOD CELL COUNT INCREASED [None]
